FAERS Safety Report 16995152 (Version 1)
Quarter: 2019Q4

REPORT INFORMATION
  Report Type: Spontaneous
  Country: FR (occurrence: FR)
  Receive Date: 20191105
  Receipt Date: 20191105
  Transmission Date: 20200122
  Serious: Yes (Hospitalization, Other)
  Sender: FDA-Public Use
  Company Number: FR-ABBVIE-19K-056-2968000-00

PATIENT
  Age: 72 Year
  Sex: Male

DRUGS (1)
  1. DUODOPA [Suspect]
     Active Substance: CARBIDOPA\LEVODOPA
     Indication: PARKINSON^S DISEASE
     Route: 050
     Dates: start: 2018

REACTIONS (5)
  - Incorrect route of product administration [Unknown]
  - Stoma site abscess [Unknown]
  - Device occlusion [Unknown]
  - Stoma site inflammation [Unknown]
  - Embedded device [Unknown]

NARRATIVE: CASE EVENT DATE: 201909
